FAERS Safety Report 8358499-4 (Version None)
Quarter: 2012Q2

REPORT INFORMATION
  Report Type: 
  Country: None (occurrence: None)
  Receive Date: 20120514
  Receipt Date: 20120509
  Transmission Date: 20120825
  Serious: Yes (Other)
  Sender: FDA-Public Use
  Company Number: FR-PFIZER INC-2012112864

PATIENT
  Age: 76 Year
  Sex: Female

DRUGS (8)
  1. IMOVANE [Concomitant]
  2. APROVEL [Concomitant]
  3. STABLON [Concomitant]
  4. GAVISCON [Concomitant]
  5. LYRICA [Suspect]
     Indication: NEURALGIA
     Dosage: 25 MG, 1X/DAY
     Dates: start: 20120429, end: 20120504
  6. CRESTOR [Concomitant]
  7. ISKEDYL [Concomitant]
  8. ACETAMINOPHEN [Concomitant]

REACTIONS (8)
  - LOSS OF CONSCIOUSNESS [None]
  - PRURITUS [None]
  - URTICARIA [None]
  - FALL [None]
  - OEDEMA [None]
  - PERIORBITAL HAEMATOMA [None]
  - ACNE [None]
  - VERTIGO [None]
